FAERS Safety Report 15932617 (Version 2)
Quarter: 2019Q1

REPORT INFORMATION
  Report Type: Spontaneous
  Country: CZ (occurrence: CZ)
  Receive Date: 20190207
  Receipt Date: 20190212
  Transmission Date: 20190417
  Serious: Yes (Other)
  Sender: FDA-Public Use
  Company Number: CZ-PFIZER INC-2019049359

PATIENT
  Age: 70 Year
  Sex: Female

DRUGS (4)
  1. TRITACE [Suspect]
     Active Substance: RAMIPRIL
     Dosage: UNK
     Route: 065
     Dates: start: 201805
  2. ELIQUIS [Suspect]
     Active Substance: APIXABAN
     Dosage: UNK
     Route: 065
     Dates: start: 201805
  3. CORDARONE [Suspect]
     Active Substance: AMIODARONE HYDROCHLORIDE
     Dosage: UNK
     Route: 065
     Dates: start: 201805
  4. EUTHYROX [Concomitant]
     Active Substance: LEVOTHYROXINE SODIUM
     Dosage: UNK
     Route: 065

REACTIONS (3)
  - Cough [Unknown]
  - Visual impairment [Unknown]
  - Alopecia [Unknown]

NARRATIVE: CASE EVENT DATE: 201809
